FAERS Safety Report 7309046 (Version 5)
Quarter: 2013Q4

REPORT INFORMATION
  Report Type: Spontaneous
  Country: US (occurrence: US)
  Receive Date: 20100309
  Receipt Date: 20131211
  Transmission Date: 20140711
  Serious: Yes (Hospitalization)
  Sender: FDA-Public Use
  Company Number: US-BAYER-201015419NA

PATIENT
  Age: 37 Year
  Sex: Female
  Weight: 70 kg

DRUGS (7)
  1. YAZ [Suspect]
     Indication: CONTRACEPTION
     Route: 048
     Dates: start: 20070129, end: 20081210
  2. YAZ [Suspect]
     Indication: PREMENSTRUAL SYNDROME
  3. ALBUTEROL [Concomitant]
     Route: 055
  4. NASONEX [Concomitant]
     Route: 065
     Dates: start: 2001
  5. CLARITIN [Concomitant]
     Dosage: EARLY 2000^S
     Route: 065
  6. VALTREX [Concomitant]
     Dosage: EARLY 2000^S
     Route: 065
  7. PREVACID [Concomitant]

REACTIONS (2)
  - Cholecystitis chronic [None]
  - Abdominal pain upper [None]
